FAERS Safety Report 7769278-0 (Version None)
Quarter: 2011Q3

REPORT INFORMATION
  Report Type: 
  Country: None (occurrence: None)
  Receive Date: 20110922
  Receipt Date: 20110919
  Transmission Date: 20111222
  Serious: No
  Sender: FDA-Public Use
  Company Number: US-PFIZER INC-2011165515

PATIENT
  Sex: Male
  Weight: 102 kg

DRUGS (5)
  1. VIAGRA [Concomitant]
     Indication: ERECTILE DYSFUNCTION
     Dosage: 100 MG, A?-1 TAB PRN
     Dates: start: 20100909
  2. LEVOTHYROXINE [Concomitant]
     Indication: HYPOTHYROIDISM
     Dosage: 75 UG, DAILY
  3. LISINOPRIL [Concomitant]
     Indication: HYPERTENSION
     Dosage: 5 MG, DAILY
     Dates: start: 20091112
  4. LIPITOR [Suspect]
     Indication: HYPERLIPIDAEMIA
     Dosage: 20 MG, 1X/DAY
     Dates: end: 20110901
  5. LIPITOR [Suspect]
     Indication: BLOOD CHOLESTEROL INCREASED
     Dosage: 20 MG, DAILY
     Route: 048
     Dates: start: 20030101, end: 20110501

REACTIONS (6)
  - LIMB DISCOMFORT [None]
  - MYALGIA [None]
  - OEDEMA PERIPHERAL [None]
  - JOINT STIFFNESS [None]
  - MUSCULAR WEAKNESS [None]
  - PAIN IN EXTREMITY [None]
